FAERS Safety Report 4267226-1 (Version None)
Quarter: 2004Q1

REPORT INFORMATION
  Report Type: 
  Country: None (occurrence: None)
  Receive Date: 20040108
  Receipt Date: 20040108
  Transmission Date: 20041129
  Serious: Yes (Hospitalization)
  Sender: FDA-Public Use
  Company Number: None

PATIENT
  Age: 61 Year
  Sex: Female
  Weight: 54.6 kg

DRUGS (6)
  1. PACLITAXEL [Suspect]
     Indication: LUNG NEOPLASM MALIGNANT
     Dosage: 50 MG 1Q WK X 3 IV
     Route: 042
     Dates: start: 20031006
  2. CARBOPLATIN [Suspect]
     Indication: LUNG NEOPLASM MALIGNANT
     Dosage: 216 MG X QWK X 3 IV
     Route: 042
     Dates: start: 20031006
  3. OSI-774 [Suspect]
     Indication: LUNG NEOPLASM MALIGNANT
     Dosage: 50 MG 1QDX 28 PO
     Route: 048
     Dates: start: 19021001
  4. DECADRON [Concomitant]
  5. KYTRIL [Concomitant]
  6. NEXIUM [Concomitant]

REACTIONS (6)
  - BRAIN OEDEMA [None]
  - CONFUSIONAL STATE [None]
  - DISORIENTATION [None]
  - NUCLEAR MAGNETIC RESONANCE IMAGING BRAIN ABNORMAL [None]
  - OEDEMA [None]
  - VOMITING [None]
